FAERS Safety Report 9460563 (Version 2)
Quarter: 2013Q3

REPORT INFORMATION
  Report Type: Report from Study
  Country: US (occurrence: US)
  Receive Date: 20130815
  Receipt Date: 20130826
  Transmission Date: 20140515
  Serious: Yes (Hospitalization)
  Sender: FDA-Public Use
  Company Number: US-AMGEN-USACT2013056791

PATIENT
  Age: 74 Year
  Sex: Female
  Weight: 51.7 kg

DRUGS (18)
  1. PANITUMUMAB [Suspect]
     Indication: NON-SMALL CELL LUNG CANCER
     Dosage: 484 MG, UNK
     Route: 042
     Dates: start: 20130123, end: 20130718
  2. PEMETREXED [Concomitant]
     Indication: NON-SMALL CELL LUNG CANCER
     Dosage: 745 MG, UNK
     Route: 042
     Dates: start: 20130123, end: 20130718
  3. CARBOPLATIN [Concomitant]
     Indication: NON-SMALL CELL LUNG CANCER
     Dosage: 552 MG, UNK
     Route: 042
     Dates: start: 20130123, end: 20130508
  4. CEPHALEXIN [Concomitant]
     Indication: COUGH
     Dosage: 250 MG, TID
     Dates: start: 20130805
  5. CEPHALEXIN [Concomitant]
     Indication: DYSPNOEA
  6. ROBITUSSIN DM [Concomitant]
     Indication: COUGH
     Dosage: UNK UNK, AS NECESSARY
     Dates: start: 20130524
  7. ROBITUSSIN DM [Concomitant]
     Indication: DYSPNOEA
  8. SYMBICORT [Concomitant]
     Indication: COUGH
     Dosage: UNK UNK, BID
     Dates: start: 20130109
  9. SYMBICORT [Concomitant]
     Indication: DYSPNOEA
  10. SINGULAIR [Concomitant]
     Indication: COUGH
     Dosage: 10 MG, QD
     Dates: start: 20130708
  11. SINGULAIR [Concomitant]
     Indication: DYSPNOEA
  12. COMBIVENT [Concomitant]
     Indication: COUGH
     Dosage: UNK UNK, QID
     Dates: start: 20100907
  13. COMBIVENT [Concomitant]
     Indication: DYSPNOEA
  14. ALBUTEROL [Concomitant]
     Indication: COUGH
     Dosage: UNK UNK, AS NECESSARY
     Dates: start: 20130801
  15. ALBUTEROL [Concomitant]
     Indication: DYSPNOEA
  16. XANAX [Concomitant]
     Indication: ANXIETY
     Dosage: UNK UNK, AS NECESSARY
     Dates: start: 19930907
  17. LEVOTHYROXINE [Concomitant]
     Indication: HYPOTHYROIDISM
     Dosage: 25 MUG, QD
     Dates: start: 20100907
  18. DILTIAZEM [Concomitant]
     Indication: HEART RATE IRREGULAR
     Dosage: 120 MG, BID
     Route: 048
     Dates: start: 20130624

REACTIONS (1)
  - Pneumonitis [Not Recovered/Not Resolved]
